FAERS Safety Report 16264070 (Version 2)
Quarter: 2019Q2

REPORT INFORMATION
  Report Type: Report from Study
  Country: US (occurrence: US)
  Receive Date: 20190502
  Receipt Date: 20190524
  Transmission Date: 20190711
  Serious: Yes (Death, Hospitalization)
  Sender: FDA-Public Use
  Company Number: PHEH2019US018767

PATIENT
  Sex: Female
  Weight: 77.1 kg

DRUGS (1)
  1. AFINITOR [Suspect]
     Active Substance: EVEROLIMUS
     Indication: BREAST CANCER METASTATIC
     Dosage: 10 MG, QD
     Route: 048
     Dates: start: 20180927, end: 20181129

REACTIONS (7)
  - Acute kidney injury [Fatal]
  - Asthenia [Unknown]
  - Inflammatory carcinoma of breast stage IV [Fatal]
  - Dehydration [Unknown]
  - Breast cancer metastatic [Fatal]
  - Malignant neoplasm progression [Fatal]
  - Hepatic enzyme increased [Unknown]
